FAERS Safety Report 9470813 (Version 1)
Quarter: 2013Q3

REPORT INFORMATION
  Report Type: Report from Study
  Country: US (occurrence: US)
  Receive Date: 20130822
  Receipt Date: 20130822
  Transmission Date: 20140515
  Serious: Yes (Hospitalization, Other)
  Sender: FDA-Public Use
  Company Number: US-ABBOTT-13P-163-1132929-00

PATIENT
  Age: 15 Year
  Sex: Male

DRUGS (7)
  1. HUMIRA [Suspect]
     Indication: CROHN^S DISEASE
     Dates: start: 201304
  2. HUMIRA [Suspect]
  3. HUMIRA [Suspect]
  4. ZOFRAN [Suspect]
     Indication: NAUSEA
     Dosage: ZOFRAN EFFECTIVELY TREATED PATIENT^S NAUSEA
  5. FLORINEF [Suspect]
     Indication: NERVOUS SYSTEM DISORDER
     Dates: start: 201305, end: 201305
  6. FLORINEF [Suspect]
     Indication: TACHYCARDIA
  7. LANSOPRAZOLE [Concomitant]
     Indication: DYSPEPSIA
     Dates: start: 201305

REACTIONS (26)
  - Dizziness [Unknown]
  - Crohn^s disease [Not Recovered/Not Resolved]
  - Pruritus [Unknown]
  - Nausea [Unknown]
  - Pallor [Not Recovered/Not Resolved]
  - Cold sweat [Not Recovered/Not Resolved]
  - Headache [Unknown]
  - Tremor [Unknown]
  - Constipation [Recovered/Resolved]
  - Tachycardia [Unknown]
  - Tremor [Unknown]
  - Dizziness [Unknown]
  - Balance disorder [Unknown]
  - Gastric haemorrhage [Unknown]
  - Rectal haemorrhage [Unknown]
  - Miliaria [Unknown]
  - Increased tendency to bruise [Unknown]
  - Haemorrhagic diathesis [Unknown]
  - Chest discomfort [Unknown]
  - Crohn^s disease [Unknown]
  - Injection site bruising [Unknown]
  - Injection site haemorrhage [Unknown]
  - Palpitations [Unknown]
  - Feeling hot [Unknown]
  - Dyspnoea [Unknown]
  - Drug ineffective [Unknown]
